FAERS Safety Report 7904947-0 (Version None)
Quarter: 2011Q4

REPORT INFORMATION
  Report Type: 
  Country: None (occurrence: None)
  Receive Date: 20111109
  Receipt Date: 20111102
  Transmission Date: 20120403
  Serious: Yes (Other)
  Sender: FDA-Public Use
  Company Number: PHEH2011US08496

PATIENT
  Sex: Female

DRUGS (3)
  1. PROTONIX [Concomitant]
     Dosage: 40 MG, QD
  2. FEMARA [Concomitant]
     Dosage: 2.5 MG, QD
  3. RECLAST [Suspect]
     Dosage: 5 MG, UNK
     Route: 042
     Dates: start: 20100524

REACTIONS (2)
  - BLADDER CANCER [None]
  - DISCOMFORT [None]
